FAERS Safety Report 5591371-1 (Version None)
Quarter: 2008Q1

REPORT INFORMATION
  Report Type: 
  Country: None (occurrence: None)
  Receive Date: 20080111
  Receipt Date: 20080111
  Transmission Date: 20080703
  Serious: Yes (Hospitalization)
  Sender: FDA-Public Use
  Company Number: None

PATIENT
  Age: 54 Year
  Sex: Female
  Weight: 79.6 kg

DRUGS (4)
  1. GEMCITABINE [Suspect]
     Indication: LUNG NEOPLASM MALIGNANT
     Dosage: 1520 MG  DAY 1 AND 8    IV
     Route: 042
     Dates: start: 20071212, end: 20071219
  2. CAPECITABINE [Suspect]
     Indication: LUNG NEOPLASM MALIGNANT
     Dosage: 950  MG  BID D1-14  PO
     Route: 048
     Dates: start: 20071212, end: 20071226
  3. OXYCODONE [Concomitant]
  4. OXYCONTIN [Concomitant]

REACTIONS (2)
  - METASTASES TO SPINE [None]
  - NEOPLASM PROGRESSION [None]
